FAERS Safety Report 4287085-0 (Version None)
Quarter: 2004Q1

REPORT INFORMATION
  Report Type: 
  Country: None (occurrence: None)
  Receive Date: 20040205
  Receipt Date: 20040123
  Transmission Date: 20041129
  Serious: Yes (Other)
  Sender: FDA-Public Use
  Company Number: 2004005112

PATIENT
  Age: 78 Year
  Sex: Female
  Weight: 59.8748 kg

DRUGS (2)
  1. ZOLOFT [Suspect]
     Indication: DEPRESSION
     Dosage: 50 MG (DAILY), ORAL
     Route: 048
  2. XANAX [Suspect]
     Indication: ANXIETY
     Dosage: 2 MG (BID), ORAL
     Route: 048

REACTIONS (3)
  - DEPRESSION [None]
  - DRUG DEPENDENCE [None]
  - URINARY TRACT INFECTION [None]
